FAERS Safety Report 6895406-5 (Version None)
Quarter: 2010Q3

REPORT INFORMATION
  Report Type: 
  Country: None (occurrence: None)
  Receive Date: 20100802
  Receipt Date: 20100721
  Transmission Date: 20110219
  Serious: Yes (Other)
  Sender: FDA-Public Use
  Company Number: FI-PFIZER INC-2010068211

PATIENT
  Age: 25 Year
  Sex: Female

DRUGS (9)
  1. ZOLOFT [Suspect]
     Indication: ANXIETY
     Dosage: 100 MG, 1X/DAY X 3.5 MONTHS
     Route: 048
     Dates: start: 20100201
  2. ZOLOFT [Suspect]
     Indication: DISSOCIATIVE DISORDER
     Dosage: 50 MG, 1X/DAY
     Route: 048
     Dates: start: 20100501, end: 20100501
  3. ZELDOX [Suspect]
     Indication: ANXIETY
     Dosage: 40 MG, 2X/DAY
     Dates: start: 20100526, end: 20100601
  4. ZELDOX [Suspect]
     Indication: DISSOCIATIVE DISORDER
  5. EFFEXOR [Suspect]
     Indication: DISSOCIATIVE DISORDER
     Dosage: 75 MG, 1X/DAY
     Dates: start: 20100601, end: 20100101
  6. EFFEXOR [Suspect]
     Indication: ANXIETY
  7. OXAZEPAM [Concomitant]
     Dosage: UNK
  8. THYROXIN [Concomitant]
     Dosage: UNK (USED ONCE IN AWHILE)
  9. PROMAZIN [Concomitant]
     Dosage: UNK (USED ONCE IN AWHILE)

REACTIONS (21)
  - ABNORMAL BEHAVIOUR [None]
  - AGGRESSION [None]
  - AGITATION [None]
  - ANGER [None]
  - CONFUSIONAL STATE [None]
  - DELIRIUM [None]
  - DRUG INEFFECTIVE [None]
  - DRUG WITHDRAWAL SYNDROME [None]
  - DYSPNOEA [None]
  - EMOTIONAL DISORDER [None]
  - FATIGUE [None]
  - FLIGHT OF IDEAS [None]
  - HYPOMANIA [None]
  - MENTAL IMPAIRMENT [None]
  - RESTLESSNESS [None]
  - SCREAMING [None]
  - SUICIDAL IDEATION [None]
  - TENSION [None]
  - UNEMPLOYMENT [None]
  - URTICARIA [None]
  - WEIGHT INCREASED [None]
